FAERS Safety Report 7001757-6 (Version None)
Quarter: 2010Q3

REPORT INFORMATION
  Report Type: 
  Country: None (occurrence: None)
  Receive Date: 20100920
  Receipt Date: 20100311
  Transmission Date: 20110219
  Serious: Yes (Other)
  Sender: FDA-Public Use
  Company Number: US-ASTRAZENECA-2008UW24321

PATIENT
  Age: 12663 Day
  Sex: Male
  Weight: 88.5 kg

DRUGS (10)
  1. SEROQUEL [Suspect]
     Indication: SCHIZOAFFECTIVE DISORDER
     Route: 048
     Dates: start: 19990301
  2. SEROQUEL [Suspect]
     Indication: TARDIVE DYSKINESIA
     Route: 048
     Dates: start: 19990301
  3. SEROQUEL [Suspect]
     Dosage: 25 TO 300 MG
     Route: 048
     Dates: start: 19990329
  4. SEROQUEL [Suspect]
     Dosage: 25 TO 300 MG
     Route: 048
     Dates: start: 19990329
  5. CLOZARIL [Concomitant]
     Dates: start: 20020416
  6. HALDOL [Concomitant]
     Dates: start: 19920101, end: 19960101
  7. RISPERDAL [Concomitant]
     Dates: start: 19961010, end: 19971120
  8. ZYPREXA [Concomitant]
     Dates: start: 19980806, end: 20000201
  9. ZYPREXA [Concomitant]
     Route: 048
     Dates: start: 19980908
  10. RESERPINE [Concomitant]
     Dosage: 0.25 TO 1 MG
     Route: 048
     Dates: start: 19990201

REACTIONS (3)
  - BLOOD CHOLESTEROL INCREASED [None]
  - DIABETES MELLITUS [None]
  - TARDIVE DYSKINESIA [None]
